FAERS Safety Report 8063255-0 (Version None)
Quarter: 2012Q1

REPORT INFORMATION
  Report Type: 
  Country: None (occurrence: None)
  Receive Date: 20120123
  Receipt Date: 20120117
  Transmission Date: 20120608
  Serious: Yes (Other)
  Sender: FDA-Public Use
  Company Number: PHHY2012DE004425

PATIENT
  Age: 58 Year
  Sex: Female

DRUGS (1)
  1. ZOMETA [Suspect]
     Dosage: 4 MG, EVERY 6 MONTHS
     Route: 042

REACTIONS (1)
  - OSTEONECROSIS OF JAW [None]
